FAERS Safety Report 20599029 (Version 1)
Quarter: 2022Q1

REPORT INFORMATION
  Report Type: Spontaneous
  Country: RU (occurrence: None)
  Receive Date: 20220315
  Receipt Date: 20220315
  Transmission Date: 20220424
  Serious: Yes (Death)
  Sender: FDA-Public Use
  Company Number: 2022A110835

PATIENT
  Age: 48 Year
  Sex: Male
  Weight: 100 kg

DRUGS (3)
  1. IMFINZI [Suspect]
     Active Substance: DURVALUMAB
     Indication: Small cell lung cancer
     Route: 042
     Dates: start: 2021, end: 202201
  2. CARBOPLATIN [Concomitant]
     Active Substance: CARBOPLATIN
  3. CISPLATIN [Concomitant]
     Active Substance: CISPLATIN

REACTIONS (2)
  - Malignant neoplasm progression [Fatal]
  - Brain neoplasm [Fatal]

NARRATIVE: CASE EVENT DATE: 20220101
